FAERS Safety Report 6706671-9 (Version None)
Quarter: 2010Q2

REPORT INFORMATION
  Report Type: 
  Country: None (occurrence: None)
  Receive Date: 20100503
  Receipt Date: 20100402
  Transmission Date: 20101027
  Serious: No
  Sender: FDA-Public Use
  Company Number: US-BAYER-201013954BCC

PATIENT
  Age: 71 Year
  Sex: Female
  Weight: 76 kg

DRUGS (6)
  1. ALEVE (CAPLET) [Suspect]
     Indication: ARTHRALGIA
     Dosage: TOTAL DAILY DOSE: 220 MG  UNIT DOSE: 220 MG
     Route: 048
     Dates: start: 20100329, end: 20100401
  2. ANLOTOPENE [Concomitant]
  3. NEXIUM [Concomitant]
  4. METOPROLOL TARTRATE [Concomitant]
  5. LIPITOR [Concomitant]
  6. ASPIRIN [Concomitant]

REACTIONS (1)
  - OEDEMA PERIPHERAL [None]
